FAERS Safety Report 5981396-6 (Version None)
Quarter: 2008Q4

REPORT INFORMATION
  Report Type: 
  Country: None (occurrence: None)
  Receive Date: 20081205
  Receipt Date: 20080222
  Transmission Date: 20090506
  Serious: No
  Sender: FDA-Public Use
  Company Number: US-AMGEN-KDL265892

PATIENT
  Sex: Female

DRUGS (3)
  1. ENBREL [Suspect]
     Indication: RHEUMATOID ARTHRITIS
     Route: 058
     Dates: start: 20080207
  2. METHOTREXATE [Concomitant]
     Dates: start: 20000101
  3. AZULFIDINE EN-TABS [Concomitant]
     Dates: start: 20000101

REACTIONS (1)
  - INJECTION SITE HAEMATOMA [None]
